FAERS Safety Report 16140876 (Version 1)
Quarter: 2019Q1

REPORT INFORMATION
  Report Type: Spontaneous
  Country: US (occurrence: US)
  Receive Date: 20190226
  Receipt Date: 20190226
  Transmission Date: 20190418
  Serious: Yes (Other)
  Sender: FDA-Public Use
  Company Number: None

PATIENT
  Age: 51 Year
  Sex: Male
  Weight: 85.5 kg

DRUGS (3)
  1. ACETAMINOPHEN\HYDROCODONE [Suspect]
     Active Substance: ACETAMINOPHEN\HYDROCODONE
     Indication: SPINAL DISORDER
  2. ACETAMINOPHEN\HYDROCODONE [Suspect]
     Active Substance: ACETAMINOPHEN\HYDROCODONE
     Indication: ABDOMINAL MASS
     Dosage: ?          OTHER FREQUENCY:2;?
     Route: 048
  3. ACETAMINOPHEN\HYDROCODONE [Suspect]
     Active Substance: ACETAMINOPHEN\HYDROCODONE
     Indication: ABDOMINAL NEOPLASM
     Dosage: ?          OTHER FREQUENCY:2;?
     Route: 048

REACTIONS (6)
  - Abdominal pain [None]
  - Insurance issue [None]
  - Drug hypersensitivity [None]
  - Urticaria [None]
  - Quality of life decreased [None]
  - Swelling [None]

NARRATIVE: CASE EVENT DATE: 20130101
